FAERS Safety Report 7355055-1 (Version None)
Quarter: 2011Q1

REPORT INFORMATION
  Report Type: 
  Country: None (occurrence: None)
  Receive Date: 20110316
  Receipt Date: 20110307
  Transmission Date: 20110831
  Serious: Yes (Other)
  Sender: FDA-Public Use
  Company Number: JP-JNJFOC-20100907113

PATIENT
  Sex: Male

DRUGS (32)
  1. VIDEX [Suspect]
     Indication: HIV INFECTION
     Route: 048
  2. INVIRASE [Concomitant]
     Indication: HIV INFECTION
     Route: 048
  3. PREZISTA [Suspect]
     Indication: HIV INFECTION
     Route: 048
  4. VIDEX [Suspect]
     Route: 048
  5. VIDEX [Suspect]
     Route: 048
  6. MK-0518 [Concomitant]
     Indication: HIV INFECTION
  7. URSO 250 [Concomitant]
     Indication: LIVER DISORDER
     Route: 048
  8. VIRACEPT [Concomitant]
     Indication: HIV INFECTION
     Route: 048
  9. KALETRA [Suspect]
     Indication: HIV INFECTION
     Route: 048
  10. ZERIT [Suspect]
     Indication: HIV INFECTION
     Route: 048
  11. VIDEX [Suspect]
     Route: 048
  12. NORVIR [Suspect]
     Route: 048
  13. PREZISTA [Suspect]
     Route: 048
  14. PROZEI [Concomitant]
     Indication: HIV INFECTION
     Route: 048
  15. LEXIVA [Suspect]
     Indication: HIV INFECTION
     Route: 048
  16. TIPRANAVIR [Suspect]
     Indication: HIV INFECTION
     Route: 065
  17. VIDEX [Suspect]
     Route: 048
  18. NORVIR [Suspect]
     Indication: HIV INFECTION
     Route: 048
  19. STOCRIN [Concomitant]
     Indication: HIV INFECTION
     Route: 048
  20. EPIVIR [Concomitant]
     Indication: HIV INFECTION
     Route: 048
  21. NORVIR [Suspect]
     Route: 048
  22. NORVIR [Suspect]
     Route: 048
  23. TRUVADA [Concomitant]
     Indication: HIV INFECTION
     Route: 048
  24. CROSS EIGHT M [Concomitant]
     Indication: FACTOR VIII DEFICIENCY
  25. ISENTRESS [Concomitant]
     Route: 048
  26. ZERIT [Suspect]
     Route: 048
  27. NORVIR [Suspect]
     Route: 048
  28. RETROVIR [Concomitant]
     Indication: HIV INFECTION
     Route: 048
  29. INTELENCE [Suspect]
     Indication: HIV INFECTION
     Route: 048
  30. NORVIR [Suspect]
     Route: 048
  31. NORVIR [Suspect]
     Route: 048
  32. ZIAGEN [Concomitant]
     Indication: HIV INFECTION
     Route: 048

REACTIONS (5)
  - BLOOD ALKALINE PHOSPHATASE INCREASED [None]
  - CONDITION AGGRAVATED [None]
  - LIVER DISORDER [None]
  - HYPERTRIGLYCERIDAEMIA [None]
  - HYPERBILIRUBINAEMIA [None]
